FAERS Safety Report 19380797 (Version 1)
Quarter: 2021Q2

REPORT INFORMATION
  Report Type: Spontaneous
  Country: US (occurrence: US)
  Receive Date: 20210607
  Receipt Date: 20210607
  Transmission Date: 20210717
  Serious: No
  Sender: FDA-Public Use
  Company Number: US-AUROBINDO-AUR-APL-2021-009126

PATIENT
  Age: 59 Year
  Sex: Female
  Weight: 57.6 kg

DRUGS (3)
  1. VENLAFAXINE HYDROCHLORIDE EXTENDED?RELEASE CAPSULES 75MG [Suspect]
     Active Substance: VENLAFAXINE HYDROCHLORIDE
     Indication: ANXIETY
     Dosage: 1 DOSAGE FORM, ONCE A DAY
     Route: 048
     Dates: start: 202101
  2. VENLAFAXINE HYDROCHLORIDE EXTENDED?RELEASE CAPSULES 75MG [Suspect]
     Active Substance: VENLAFAXINE HYDROCHLORIDE
     Indication: DEPRESSION
  3. XANAX [Concomitant]
     Active Substance: ALPRAZOLAM
     Indication: PRODUCT USED FOR UNKNOWN INDICATION
     Dosage: UNK
     Route: 065

REACTIONS (7)
  - Depression [Recovering/Resolving]
  - Bedridden [Recovering/Resolving]
  - Anxiety [Recovering/Resolving]
  - Illness [Recovering/Resolving]
  - Product substitution issue [Unknown]
  - Panic attack [Recovering/Resolving]
  - Drug ineffective [Unknown]

NARRATIVE: CASE EVENT DATE: 202101
